FAERS Safety Report 7479877-1 (Version None)
Quarter: 2011Q2

REPORT INFORMATION
  Report Type: 
  Country: None (occurrence: None)
  Receive Date: 20110515
  Receipt Date: 20100412
  Transmission Date: 20111010
  Serious: No
  Sender: FDA-Public Use
  Company Number: US-NOVEN-ALL1-2010-02189

PATIENT

DRUGS (1)
  1. DAYTRANA [Suspect]
     Dosage: UNK MG, 1X/DAY:QD, (1/2) OF AN UNKNOWN MG PATCH
     Route: 062
     Dates: start: 20100301, end: 20100402

REACTIONS (5)
  - SOMNOLENCE [None]
  - AGGRESSION [None]
  - WRONG TECHNIQUE IN DRUG USAGE PROCESS [None]
  - DISTURBANCE IN SOCIAL BEHAVIOUR [None]
  - DRUG PRESCRIBING ERROR [None]
